FAERS Safety Report 15541036 (Version 1)
Quarter: 2018Q4

REPORT INFORMATION
  Report Type: Spontaneous
  Country: US (occurrence: US)
  Receive Date: 20181016
  Receipt Date: 20181016
  Transmission Date: 20190205
  Serious: Yes (Hospitalization, Other)
  Sender: FDA-Public Use
  Company Number: None

PATIENT
  Age: 45 Year
  Sex: Female

DRUGS (26)
  1. TRACLEER [Suspect]
     Active Substance: BOSENTAN
     Indication: CONNECTIVE TISSUE DISORDER
     Route: 048
     Dates: start: 201511
  2. SIMETHICONE (DIMETHICONE) [Concomitant]
     Active Substance: DIMETHICONE
  3. DIGOXIN. [Concomitant]
     Active Substance: DIGOXIN
  4. FLONASE [Concomitant]
     Active Substance: FLUTICASONE PROPIONATE
  5. COUMADIN [Concomitant]
     Active Substance: WARFARIN SODIUM
  6. TRACLEER [Suspect]
     Active Substance: BOSENTAN
     Indication: PULMONARY ARTERIAL HYPERTENSION
     Route: 048
     Dates: start: 201511
  7. DICLOFENAC TOP GEL [Concomitant]
  8. LIDOCAINE TOP PATCH [Concomitant]
  9. FUROSEMIDE. [Concomitant]
     Active Substance: FUROSEMIDE
  10. PREDNISONE. [Concomitant]
     Active Substance: PREDNISONE
  11. ALCLOMETASONE TOP CREAM [Concomitant]
  12. EMLA TOP CREAM [Concomitant]
  13. MIRALAX [Concomitant]
     Active Substance: POLYETHYLENE GLYCOL 3350
  14. LEVALBUTEROL INHL [Concomitant]
  15. POTASSIUM CHLORIDE. [Concomitant]
     Active Substance: POTASSIUM CHLORIDE
  16. HYDROCORTISONE RECT SUPP [Concomitant]
  17. MAGNESIUM OXIDE. [Concomitant]
     Active Substance: MAGNESIUM OXIDE
  18. SILDENAFIL. [Concomitant]
     Active Substance: SILDENAFIL
  19. OMEPRAZOLE. [Concomitant]
     Active Substance: OMEPRAZOLE
  20. CPOLACE [Concomitant]
  21. METOLAZONE. [Concomitant]
     Active Substance: METOLAZONE
  22. ATORVASTATIN [Concomitant]
     Active Substance: ATORVASTATIN
  23. HYDROQUINONE TOP CREAM [Concomitant]
  24. CETIRIZINE [Concomitant]
     Active Substance: CETIRIZINE HYDROCHLORIDE
  25. TRETINOIN TOP CREAM [Concomitant]
  26. ZOLPIDEM [Concomitant]
     Active Substance: ZOLPIDEM\ZOLPIDEM TARTRATE

REACTIONS (7)
  - Blood lactic acid increased [None]
  - Diarrhoea [None]
  - Abdominal pain [None]
  - Sepsis [None]
  - Colitis [None]
  - Ischaemia [None]
  - Viral infection [None]

NARRATIVE: CASE EVENT DATE: 20181007
